FAERS Safety Report 7281642-5 (Version None)
Quarter: 2011Q1

REPORT INFORMATION
  Report Type: 
  Country: None (occurrence: None)
  Receive Date: 20110208
  Receipt Date: 20110127
  Transmission Date: 20110831
  Serious: Yes (Hospitalization, Other)
  Sender: FDA-Public Use
  Company Number: BR-ELI_LILLY_AND_COMPANY-BR201101006995

PATIENT
  Sex: Male
  Weight: 58 kg

DRUGS (10)
  1. AVODART [Concomitant]
     Indication: PROSTATIC DISORDER
     Dosage: UNK, DAILY (1/D)
     Route: 065
  2. CRESTOR [Concomitant]
     Indication: VEIN DISORDER
     Dosage: 20 MG, DAILY (1/D)
     Route: 065
  3. RIVOTRIL [Concomitant]
     Indication: SLEEP DISORDER
     Dosage: UNK, UNKNOWN
     Route: 065
  4. CYMBALTA [Suspect]
     Dosage: 60 MG, UNKNOWN
     Route: 065
  5. CYMBALTA [Suspect]
     Dosage: 30 MG, UNKNOWN
     Route: 065
  6. CILOSTAZOL [Concomitant]
     Indication: BLOOD PRESSURE ABNORMAL
     Dosage: 50 MG, DAILY (1/D)
     Route: 065
  7. PANTOPRAZOL [Concomitant]
     Indication: GASTRIC DISORDER
     Dosage: UNK, DAILY (1/D)
     Route: 065
  8. CLOPIDOGREL [Concomitant]
     Indication: VEIN DISORDER
     Dosage: 75 MG, UNKNOWN
     Route: 065
  9. SOMALGIN [Concomitant]
     Indication: BLOOD DISORDER
     Dosage: UNK, DAILY (1/D)
     Route: 065
  10. CYMBALTA [Suspect]
     Indication: DEPRESSION
     Dosage: UNK, UNKNOWN
     Route: 065
     Dates: start: 20071101

REACTIONS (1)
  - THROAT CANCER [None]
